FAERS Safety Report 6379012-7 (Version None)
Quarter: 2009Q3

REPORT INFORMATION
  Report Type: 
  Country: None (occurrence: None)
  Receive Date: 20090928
  Receipt Date: 20090924
  Transmission Date: 20100115
  Serious: Yes (Death)
  Sender: FDA-Public Use
  Company Number: PHHY2009JP41235

PATIENT
  Age: 32 Year
  Sex: Male

DRUGS (7)
  1. TEGRETOL [Suspect]
     Dosage: 600 MG
     Route: 048
  2. HALOPERIDOL [Concomitant]
     Dosage: 9 MG
     Route: 048
  3. SULTOPRIDE HYDROCHLORIDE [Concomitant]
     Dosage: 1200MG
     Route: 048
  4. LITHIUM CARBONATE [Concomitant]
     Dosage: 1200 MG
     Route: 048
  5. LEVOMEPROMAZINE MALEATE [Concomitant]
     Dosage: 175 MG
     Route: 048
  6. BIPERIDEN HYDROCHLORIDE [Concomitant]
     Dosage: 6 MG
     Route: 048
  7. FLUNITRAZEPAM [Concomitant]
     Dosage: 2 MG
     Route: 048

REACTIONS (2)
  - ASPIRATION [None]
  - CHOKING [None]
